FAERS Safety Report 8504366-2 (Version None)
Quarter: 2012Q3

REPORT INFORMATION
  Report Type: 
  Country: None (occurrence: None)
  Receive Date: 20120711
  Receipt Date: 20120705
  Transmission Date: 20120928
  Serious: Yes (Other)
  Sender: FDA-Public Use
  Company Number: PHHY2012US058369

PATIENT
  Age: 81 Year
  Sex: Female

DRUGS (2)
  1. FURENOL [Concomitant]
  2. BUFFERIN [Suspect]
     Indication: MIGRAINE
     Dosage: 1 DF, UNK
     Route: 048
     Dates: start: 19760101

REACTIONS (5)
  - HYPERTENSION [None]
  - INTRACRANIAL ANEURYSM [None]
  - INCORRECT DRUG ADMINISTRATION DURATION [None]
  - BLOOD CHOLESTEROL INCREASED [None]
  - INSOMNIA [None]
